FAERS Safety Report 8881530 (Version 2)
Quarter: 2012Q4

REPORT INFORMATION
  Report Type: Report from Study
  Country: GB (occurrence: GB)
  Receive Date: 20121102
  Receipt Date: 20121109
  Transmission Date: 20130627
  Serious: Yes (Life-Threatening, Hospitalization)
  Sender: FDA-Public Use
  Company Number: GB-PFIZER INC-2012272376

PATIENT
  Age: 73 Year
  Sex: Male

DRUGS (4)
  1. CELECOXIB [Suspect]
     Indication: OSTEOARTHRITIS
     Dosage: 100 mg, 2x/day
     Route: 048
     Dates: start: 20110926, end: 20120722
  2. METFORMIN [Concomitant]
     Indication: TYPE 2 DIABETES MELLITUS
     Dosage: 500 mg, 2x/day
     Dates: start: 20060724
  3. GLICLAZIDE [Concomitant]
     Indication: TYPE 2 DIABETES MELLITUS
     Dosage: 40 mg, 2x/day
     Dates: start: 20061017
  4. ASPIRIN DISPERSIBLE [Concomitant]
     Indication: TYPE 2 DIABETES MELLITUS
     Dosage: 75 mg, 1x/day
     Dates: start: 20040720

REACTIONS (3)
  - Septic necrosis [Recovering/Resolving]
  - Cardiac failure [Recovering/Resolving]
  - Renal failure acute [Recovering/Resolving]
